FAERS Safety Report 7467471-8 (Version None)
Quarter: 2011Q2

REPORT INFORMATION
  Report Type: 
  Country: None (occurrence: None)
  Receive Date: 20110509
  Receipt Date: 20110405
  Transmission Date: 20111010
  Serious: No
  Sender: FDA-Public Use
  Company Number: US-SANOFI-AVENTIS-2011SA022449

PATIENT
  Age: 61 Year
  Sex: Female

DRUGS (7)
  1. LANTUS [Suspect]
  2. ANALGESICS [Concomitant]
  3. THYROID PREPARATIONS [Concomitant]
  4. ALL OTHER THERAPEUTIC PRODUCTS [Concomitant]
  5. ATORVASTATIN CALCIUM [Concomitant]
  6. APIDRA [Suspect]
     Dosage: OFTEN DOUBLE THE DOSAGE WHEN HER SUGARS ARE 500 OR ABOVE DOSE:8 UNIT(S)
     Route: 058
  7. MUSCLE RELAXANTS [Concomitant]

REACTIONS (3)
  - FATIGUE [None]
  - MEMORY IMPAIRMENT [None]
  - HYPERGLYCAEMIA [None]
